FAERS Safety Report 10221458 (Version 1)
Quarter: 2014Q1

REPORT INFORMATION
  Report Type: Spontaneous
  Country: US (occurrence: None)
  Receive Date: 20140306
  Receipt Date: 20140306
  Transmission Date: 20141002
  Serious: Yes (Hospitalization)
  Sender: FDA-Public Use
  Company Number: 163-21880-13101398

PATIENT
  Age: 61 Year
  Sex: Female
  Weight: 55.34 kg

DRUGS (9)
  1. REVLIMID (LENALIDOMIDE) (10 MILLIGRAM, CAPSULES) [Suspect]
     Indication: PLASMA CELL MYELOMA
     Dosage: 10 MG, 21 IN 28 D, PO TEMPORARILY INTERRUPTED
     Route: 048
     Dates: start: 20130918
  2. ASPIRIN (ACETYLSALICYLIC ACID) (UNKNOWN) (ACETYLSALICYLIC ACID) [Concomitant]
  3. CLOPIDOGREL (CLOPIDOGREL) (UNKNOWN) [Concomitant]
  4. SIMVASTATIN (SIMVASTATIN) (UNKNOWN) [Concomitant]
  5. DEXAMETHASONE (DEXAMETHASONE) (UNKNOWN) [Concomitant]
  6. HYDROCODONE/APAP (VICODIN) (UNKNOWN) [Concomitant]
  7. METOPROLOL (METOPROLOL) (UNKNOWN) [Concomitant]
  8. TOPIRAGEN (TOPIRAMATE) (UNKNOWN) [Concomitant]
  9. ZOLPIDEM (ZOLPIDEM) (UNKNOWN) (ZOLPIDEM) [Concomitant]

REACTIONS (2)
  - Dehydration [None]
  - Hypotension [None]
